FAERS Safety Report 8236381-0 (Version None)
Quarter: 2012Q1

REPORT INFORMATION
  Report Type: 
  Country: None (occurrence: None)
  Receive Date: 20120327
  Receipt Date: 20120321
  Transmission Date: 20120608
  Serious: Yes (Other)
  Sender: FDA-Public Use
  Company Number: US-JNJFOC-20120310799

PATIENT
  Age: 32 Year
  Sex: Male

DRUGS (2)
  1. CLOBEX [Concomitant]
     Indication: PSORIASIS
     Route: 061
  2. STELARA [Suspect]
     Indication: PSORIASIS
     Dosage: RECEIVED 4 DOSES
     Route: 058
     Dates: start: 20110901

REACTIONS (1)
  - ALOPECIA [None]
